FAERS Safety Report 20460742 (Version 1)
Quarter: 2022Q1

REPORT INFORMATION
  Report Type: Spontaneous
  Country: US (occurrence: None)
  Receive Date: 20220210
  Receipt Date: 20220210
  Transmission Date: 20220423
  Serious: Yes (Hospitalization)
  Sender: FDA-Public Use
  Company Number: None

PATIENT
  Age: 57 Year
  Sex: Male
  Weight: 85.95 kg

DRUGS (1)
  1. LYRICA [Suspect]
     Active Substance: PREGABALIN
     Indication: Nerve injury
     Dosage: FREQUENCY : TWICE A DAY;?
     Route: 048

REACTIONS (5)
  - Drug withdrawal syndrome [None]
  - Drug dependence [None]
  - Drug tolerance [None]
  - Drug withdrawal headache [None]
  - Suicidal ideation [None]

NARRATIVE: CASE EVENT DATE: 20220210
